FAERS Safety Report 11166864 (Version 1)
Quarter: 2015Q2

REPORT INFORMATION
  Report Type: Spontaneous
  Country: MX (occurrence: MX)
  Receive Date: 20150605
  Receipt Date: 20150605
  Transmission Date: 20150821
  Serious: Yes (Hospitalization, Other)
  Sender: FDA-Public Use
  Company Number: MX-ROCHE-1586824

PATIENT
  Age: 34 Year
  Sex: Female
  Weight: 76 kg

DRUGS (6)
  1. VINCRISTINE [Suspect]
     Active Substance: VINCRISTINE
     Indication: DIFFUSE LARGE B-CELL LYMPHOMA
     Dosage: TOTAL DOSES
     Route: 042
     Dates: start: 20141012, end: 20150318
  2. PREDNISONE. [Suspect]
     Active Substance: PREDNISONE
     Indication: DIFFUSE LARGE B-CELL LYMPHOMA
     Dosage: ONE TABLET FOR 12 HOURS FOR 5 DAYS
     Route: 048
     Dates: start: 20141012, end: 20150318
  3. CYCLOPHOSPHAMIDE. [Suspect]
     Active Substance: CYCLOPHOSPHAMIDE
     Indication: DIFFUSE LARGE B-CELL LYMPHOMA
     Dosage: CYCLE- EVERY 21 DAYS
     Route: 042
     Dates: start: 20141012, end: 20150318
  4. DOXORUBICIN [Concomitant]
     Active Substance: DOXORUBICIN
     Indication: DIFFUSE LARGE B-CELL LYMPHOMA
  5. MABTHERA [Suspect]
     Active Substance: RITUXIMAB
     Indication: DIFFUSE LARGE B-CELL LYMPHOMA
     Dosage: CYCLE- EVERY 21 DAYS
     Route: 042
     Dates: start: 20141012, end: 20150318
  6. EPIRUBICIN [Suspect]
     Active Substance: EPIRUBICIN
     Indication: DIFFUSE LARGE B-CELL LYMPHOMA
     Dosage: CYCLE- EVERY 21 DAYS
     Route: 042
     Dates: start: 20141012, end: 20150318

REACTIONS (8)
  - Neutropenia [Recovered/Resolved]
  - Cytopenia [Unknown]
  - Infection [Unknown]
  - Pneumonia [Recovered/Resolved]
  - Anaemia [Recovered/Resolved]
  - Disease progression [Not Recovered/Not Resolved]
  - Disease recurrence [Unknown]
  - Thrombocytopenia [Recovered/Resolved]

NARRATIVE: CASE EVENT DATE: 20150409
